FAERS Safety Report 9148687 (Version 1)
Quarter: 2013Q1

REPORT INFORMATION
  Report Type: Spontaneous
  Country: US (occurrence: US)
  Receive Date: 20130308
  Receipt Date: 20130308
  Transmission Date: 20140127
  Serious: No
  Sender: FDA-Public Use
  Company Number: US-ENDO PHARMACEUTICALS INC.-OPCR20122038

PATIENT
  Age: 42 None
  Sex: Female

DRUGS (3)
  1. OPANA ER [Suspect]
     Indication: ARTHRALGIA
     Route: 048
     Dates: start: 201207, end: 201211
  2. OPANA ER [Suspect]
     Route: 048
     Dates: start: 20121112
  3. NEXIUM [Concomitant]
     Indication: DYSPEPSIA
     Dosage: UNK
     Route: 048

REACTIONS (3)
  - Dysphonia [Not Recovered/Not Resolved]
  - Dyspepsia [Not Recovered/Not Resolved]
  - Drug effect incomplete [Not Recovered/Not Resolved]
